FAERS Safety Report 15940883 (Version 2)
Quarter: 2019Q1

REPORT INFORMATION
  Report Type: Spontaneous
  Country: UY (occurrence: UY)
  Receive Date: 20190208
  Receipt Date: 20190314
  Transmission Date: 20190417
  Serious: Yes (Other)
  Sender: FDA-Public Use
  Company Number: UY-PFIZER INC-2019055157

PATIENT
  Age: 9 Year
  Sex: Female

DRUGS (2)
  1. GENOTROPIN [Suspect]
     Active Substance: SOMATROPIN
     Indication: TURNER^S SYNDROME
     Dosage: 0.6 TO 1MG, 7 TIMES A WEEK (FROM MONDAY TO FRIDAY 7 CLICKS AND ON SATURDAY AND SUNDAYS 10 CLICKS)
     Dates: start: 20140901
  2. GENOTROPIN [Suspect]
     Active Substance: SOMATROPIN
     Dosage: 0.6 TO 1MG, 7 TIMES A WEEK (FROM MONDAY TO FRIDAY 7 CLICKS AND ON SATURDAY AND SUNDAYS 10 CLICKS)
     Dates: start: 20140901

REACTIONS (1)
  - Growth retardation [Unknown]

NARRATIVE: CASE EVENT DATE: 20190121
